FAERS Safety Report 5092474-0 (Version None)
Quarter: 2006Q3

REPORT INFORMATION
  Report Type: 
  Country: None (occurrence: None)
  Receive Date: 20060823
  Receipt Date: 20060809
  Transmission Date: 20061208
  Serious: Yes (Death, Life-Threatening, Hospitalization)
  Sender: FDA-Public Use
  Company Number: THYM-11029

PATIENT
  Age: 51 Year
  Sex: Male
  Weight: 82 kg

DRUGS (7)
  1. THYMOGLOBULIN [Suspect]
     Indication: PROPHYLAXIS AGAINST TRANSPLANT REJECTION
     Dosage: 0.5 MG/KG QD IV
     Route: 042
     Dates: start: 20060619, end: 20060619
  2. THYMOGLOBULIN [Suspect]
     Indication: PROPHYLAXIS AGAINST TRANSPLANT REJECTION
     Dosage: 2.5 MG/KG QD IV
     Route: 042
     Dates: start: 20060620, end: 20060620
  3. THYMOGLOBULIN [Suspect]
     Indication: PROPHYLAXIS AGAINST TRANSPLANT REJECTION
     Dosage: 3 MG/KG QD IV
     Route: 042
     Dates: start: 20060621, end: 20060621
  4. FLUDARABINE [Concomitant]
  5. BUSULFAN [Concomitant]
  6. TACROLIMUS [Concomitant]
  7. METHOTREXATE [Concomitant]

REACTIONS (10)
  - ASPARTATE AMINOTRANSFERASE INCREASED [None]
  - BLOOD ALKALINE PHOSPHATASE INCREASED [None]
  - BLOOD BILIRUBIN INCREASED [None]
  - CARDIAC ARREST [None]
  - CARDIO-RESPIRATORY ARREST [None]
  - EPSTEIN-BARR VIRAEMIA [None]
  - HEPATIC FUNCTION ABNORMAL [None]
  - LOSS OF CONSCIOUSNESS [None]
  - RENAL IMPAIRMENT [None]
  - SEPTIC SHOCK [None]
